FAERS Safety Report 23931498 (Version 3)
Quarter: 2025Q2

REPORT INFORMATION
  Report Type: Spontaneous
  Country: US (occurrence: US)
  Receive Date: 20240603
  Receipt Date: 20250620
  Transmission Date: 20250717
  Serious: Yes (Hospitalization, Other)
  Sender: AUROBINDO
  Company Number: US-AUROBINDO-AUR-APL-2024-025401

PATIENT
  Age: 28 Year
  Sex: Male

DRUGS (6)
  1. BUPROPION HYDROCHLORIDE [Interacting]
     Active Substance: BUPROPION HYDROCHLORIDE
     Indication: Antidepressant therapy
     Route: 065
  2. KETAMINE HYDROCHLORIDE [Suspect]
     Active Substance: KETAMINE HYDROCHLORIDE
     Indication: Agitation
     Route: 065
  3. SERTRALINE [Interacting]
     Active Substance: SERTRALINE HYDROCHLORIDE
     Indication: Antidepressant therapy
     Route: 065
  4. DROPERIDOL [Suspect]
     Active Substance: DROPERIDOL
     Indication: Agitation
     Route: 065
  5. MIDAZOLAM [Suspect]
     Active Substance: MIDAZOLAM
     Indication: Agitation
     Route: 065
  6. PROPOFOL [Suspect]
     Active Substance: PROPOFOL
     Indication: Agitation
     Route: 065

REACTIONS (4)
  - Herbal interaction [Recovered/Resolved]
  - Serotonin syndrome [Recovered/Resolved]
  - Drug interaction [Recovered/Resolved]
  - Drug ineffective [Unknown]
